FAERS Safety Report 8707281 (Version 2)
Quarter: 2013Q4

REPORT INFORMATION
  Report Type: Spontaneous
  Country: US (occurrence: US)
  Receive Date: 20120803
  Receipt Date: 20131105
  Transmission Date: 20140711
  Serious: Yes (Other)
  Sender: FDA-Public Use
  Company Number: US-009507513-1207USA010952

PATIENT
  Age: 62 Year
  Sex: Female

DRUGS (7)
  1. ZOCOR [Suspect]
     Dosage: 5 MG, QD
     Route: 048
  2. ZOCOR [Suspect]
     Dosage: 10 MG, QD
     Route: 048
  3. ZOCOR [Suspect]
     Dosage: 15 MG, QD
     Route: 048
  4. AMLODIPINE [Suspect]
     Dosage: 10 MG, QD
     Route: 048
  5. MEDROL [Suspect]
  6. LEVAQUIN [Suspect]
  7. XANAX [Concomitant]

REACTIONS (13)
  - Drug ineffective [Unknown]
  - Drug dispensing error [Unknown]
  - Vitamin D decreased [Unknown]
  - Palpitations [Unknown]
  - Swelling [Unknown]
  - Dizziness [Unknown]
  - Transient ischaemic attack [Unknown]
  - Arterial disorder [Unknown]
  - Urticaria [Unknown]
  - Joint swelling [Unknown]
  - Feeling abnormal [Unknown]
  - Blood pressure increased [Unknown]
  - Product substitution issue [Unknown]
